FAERS Safety Report 7245342-X (Version None)
Quarter: 2011Q1

REPORT INFORMATION
  Report Type: 
  Country: None (occurrence: None)
  Receive Date: 20110126
  Receipt Date: 20110119
  Transmission Date: 20110831
  Serious: Yes (Other)
  Sender: FDA-Public Use
  Company Number: BR-ABBOTT-11P-020-0699809-00

PATIENT
  Sex: Female

DRUGS (3)
  1. HUMIRA [Suspect]
     Indication: CROHN'S DISEASE
     Dosage: INDUCTION DOSE: 4 DOSES OF 40 MG
  2. UNKNOWN DRUG [Suspect]
     Indication: SEDATIVE THERAPY
  3. HUMIRA [Suspect]

REACTIONS (12)
  - DYSPNOEA [None]
  - MALAISE [None]
  - TACHYCARDIA [None]
  - DIZZINESS [None]
  - RASH [None]
  - ERYTHEMA [None]
  - NERVOUSNESS [None]
  - DRY MOUTH [None]
  - FLATULENCE [None]
  - PALPITATIONS [None]
  - GENERALISED OEDEMA [None]
  - MENTAL DISORDER [None]
